FAERS Safety Report 20733975 (Version 1)
Quarter: 2022Q2

REPORT INFORMATION
  Report Type: Spontaneous
  Country: FR (occurrence: FR)
  Receive Date: 20220421
  Receipt Date: 20220421
  Transmission Date: 20220721
  Serious: Yes (Death, Other)
  Sender: FDA-Public Use
  Company Number: None

PATIENT
  Age: 90 Year
  Sex: Female
  Weight: 63 kg

DRUGS (1)
  1. VECTIBIX [Suspect]
     Active Substance: PANITUMUMAB
     Indication: Colon cancer metastatic
     Dosage: 20 MILLIGRAM PER MILLILITRE
     Route: 042
     Dates: start: 20220204, end: 20220304

REACTIONS (2)
  - Thrombocytopenia [Fatal]
  - Eczema [Fatal]

NARRATIVE: CASE EVENT DATE: 20220324
